FAERS Safety Report 4362331-3 (Version None)
Quarter: 2004Q2

REPORT INFORMATION
  Report Type: 
  Country: None (occurrence: None)
  Receive Date: 20040520
  Receipt Date: 20040520
  Transmission Date: 20050107
  Serious: Yes (Hospitalization)
  Sender: FDA-Public Use
  Company Number: None

PATIENT

DRUGS (9)
  1. GLIPIZIDE [Suspect]
     Dosage: 10 MG BID
  2. NPH INSULIN [Suspect]
     Dosage: 45 U IN AM -15 U PM
  3. SIMVASTATIN [Concomitant]
  4. FUROSEMIDE [Concomitant]
  5. MECLIZINE [Concomitant]
  6. NIFEDIPINE [Concomitant]
  7. EPOGEN [Concomitant]
  8. SEVELAMER [Concomitant]
  9. DITILIAZEM [Concomitant]

REACTIONS (1)
  - HYPOGLYCAEMIA [None]
